FAERS Safety Report 20862752 (Version 11)
Quarter: 2023Q1

REPORT INFORMATION
  Report Type: Spontaneous
  Country: US (occurrence: US)
  Receive Date: 20220523
  Receipt Date: 20230329
  Transmission Date: 20230417
  Serious: Yes (Hospitalization, Other)
  Sender: FDA-Public Use
  Company Number: US-BRISTOL-MYERS SQUIBB COMPANY-2022-043034

PATIENT
  Age: 82 Year
  Sex: Female

DRUGS (5)
  1. REVLIMID [Suspect]
     Active Substance: LENALIDOMIDE
     Indication: Mantle cell lymphoma
     Dosage: FREQ: EVERY DAY ON DAYS 1-21 OF EACH 28-DAY CYCLE
     Route: 048
     Dates: start: 20220413
  2. REVLIMID [Suspect]
     Active Substance: LENALIDOMIDE
  3. REVLIMID [Suspect]
     Active Substance: LENALIDOMIDE
     Dosage: FREQUENCY: TAKE 1 CAPSULE BY MOUTH DAILY ON DAYS 1-21  OF EACH 28 DAY CYCLE
     Route: 048
     Dates: start: 20220413
  4. REVLIMID [Suspect]
     Active Substance: LENALIDOMIDE
     Dosage: FREQUENCY: TAKE 1 CAPSULE BY MOUTH DAILY ON DAYS 1-21  OF EACH 28 DAY CYCLE
     Route: 048
     Dates: start: 20220413
  5. REVLIMID [Suspect]
     Active Substance: LENALIDOMIDE
     Dosage: TAKE 1 CAPSULE BY MOUTH EVERY DAY TAKE WHOLE W/WATER ON DAYS 1-21 OF EACH 28 DAY CYCLE.
     Route: 048
     Dates: start: 20221027, end: 20230323

REACTIONS (15)
  - Neuropathy peripheral [Unknown]
  - Gout [Recovered/Resolved]
  - Diarrhoea [Unknown]
  - Feeling abnormal [Unknown]
  - Abdominal pain [Unknown]
  - Dyspnoea [Unknown]
  - Decreased appetite [Unknown]
  - Weight decreased [Unknown]
  - Oral pain [Unknown]
  - Pain in extremity [Unknown]
  - Fatigue [Unknown]
  - Gastrointestinal disorder [Unknown]
  - Rash macular [Not Recovered/Not Resolved]
  - Constipation [Not Recovered/Not Resolved]
  - Malaise [Unknown]
